FAERS Safety Report 8192584-5 (Version None)
Quarter: 2012Q1

REPORT INFORMATION
  Report Type: 
  Country: None (occurrence: None)
  Receive Date: 20120221
  Receipt Date: 20111219
  Transmission Date: 20120608
  Serious: No
  Sender: FDA-Public Use
  Company Number: 1000026451

PATIENT
  Age: 61 Year
  Sex: Female

DRUGS (10)
  1. ASMANEX (MOMETASONE FUROATE) (MOMETASONE FUROATE) [Concomitant]
  2. DEPLIN (CALCIUM LEVOMEFOLATE) (CALCIUM LEVOMEFOLATE) [Concomitant]
  3. CLONAZEPAM [Concomitant]
  4. PRIMIDONE (PRIMIDONE) (PRIMIDONE) [Concomitant]
  5. CYMBALTA (DULOXETINE HYDROCHLORIDE) (DULOXETINE HYDROCHLORIDE) [Concomitant]
  6. STALEVO (STALEVO) (STALEVO) [Concomitant]
  7. BONIVA (IBANDRONATE SODIUM) (IBANDRONATE SODIUM) [Concomitant]
  8. FORADIL (FORMOTEROL FUMARATE) (FORMOTEROL FUMARATE) [Concomitant]
  9. ABILIFY (ARIPIPRAZOLE) (ARIPIPRAZOLE) [Concomitant]
  10. VIIBRYD [Suspect]
     Indication: DEPRESSION
     Dosage: ORAL; 40 MG (40 MG, 1 IN 1 D), ORAL
     Route: 048

REACTIONS (1)
  - INSOMNIA [None]
